FAERS Safety Report 11294445 (Version 1)
Quarter: 2015Q3

REPORT INFORMATION
  Report Type: Spontaneous
  Country: US (occurrence: US)
  Receive Date: 20150722
  Receipt Date: 20150722
  Transmission Date: 20151125
  Serious: No
  Sender: FDA-Public Use
  Company Number: US-ELI_LILLY_AND_COMPANY-US200807004457

PATIENT
  Age: 65 Year
  Sex: Female

DRUGS (1)
  1. EVISTA [Suspect]
     Active Substance: RALOXIFENE HYDROCHLORIDE
     Indication: PROPHYLAXIS
     Dosage: 60 MG, DAILY (1/D)
     Dates: start: 200007, end: 200804

REACTIONS (2)
  - Bone density decreased [Not Recovered/Not Resolved]
  - Osteopenia [Unknown]

NARRATIVE: CASE EVENT DATE: 200807
